FAERS Safety Report 16520176 (Version 1)
Quarter: 2019Q3

REPORT INFORMATION
  Report Type: Spontaneous
  Country: US (occurrence: US)
  Receive Date: 20190702
  Receipt Date: 20190702
  Transmission Date: 20191004
  Serious: No
  Sender: FDA-Public Use
  Company Number: US-TEVA-2019-US-1068329

PATIENT
  Sex: Female

DRUGS (1)
  1. TRI-LO-SPRINTEC [Suspect]
     Active Substance: ETHINYL ESTRADIOL\NORGESTIMATE
     Indication: CONTRACEPTION
     Dosage: NORGESTIMATE 0.18, 0.215, 0.250 AND ETHINYL ESTRADIOL 0.25; 0.035, TRIPHASIC 28 DAY REGIMEN
     Route: 065

REACTIONS (2)
  - Mood swings [Unknown]
  - Weight increased [Unknown]
